FAERS Safety Report 13521908 (Version 1)
Quarter: 2017Q2

REPORT INFORMATION
  Report Type: Other
  Country: US (occurrence: US)
  Receive Date: 20170508
  Receipt Date: 20170508
  Transmission Date: 20170830
  Serious: No
  Sender: FDA-Public Use
  Company Number: US-ARALEZ PHARMACEUTICALS R+D INC.-SR-KEV-2017-007

PATIENT
  Sex: Male

DRUGS (1)
  1. KEVEYIS [Suspect]
     Active Substance: DICHLORPHENAMIDE
     Indication: PARALYSIS
     Route: 065

REACTIONS (2)
  - Cognitive disorder [Recovered/Resolved]
  - Paraesthesia [Not Recovered/Not Resolved]
